FAERS Safety Report 21751025 (Version 3)
Quarter: 2023Q1

REPORT INFORMATION
  Report Type: Report from Study
  Country: US (occurrence: US)
  Receive Date: 20221219
  Receipt Date: 20230220
  Transmission Date: 20230418
  Serious: Yes (Hospitalization)
  Sender: FDA-Public Use
  Company Number: US-ABBVIE-4242643

PATIENT
  Sex: Male

DRUGS (2)
  1. VENCLEXTA [Suspect]
     Active Substance: VENETOCLAX
     Indication: Latent syphilis
     Dosage: TAKE 1 TABLET BY MOUTH DAILY FOR 14 DAYS ON THEN 14 DAYS OFF
     Route: 048
     Dates: start: 20230209
  2. VENCLEXTA [Suspect]
     Active Substance: VENETOCLAX
     Indication: Latent syphilis
     Dosage: TAKE 1 TABLET BY MOUTH DAILY FOR 14 DAYS ON THEN 14 DAYS OFF?LAST ADMIN DATE 2023
     Route: 048
     Dates: start: 20230104

REACTIONS (2)
  - Hospitalisation [Unknown]
  - Pruritus [Recovering/Resolving]
